FAERS Safety Report 4589137-4 (Version None)
Quarter: 2005Q1

REPORT INFORMATION
  Report Type: 
  Country: None (occurrence: None)
  Receive Date: 20050125
  Receipt Date: 20040830
  Transmission Date: 20050727
  Serious: No
  Sender: FDA-Public Use
  Company Number: USA040671300

PATIENT
  Age: 80 Year
  Sex: Female

DRUGS (16)
  1. EVISTA [Suspect]
  2. FORTEO [Suspect]
     Indication: OSTEOPOROSIS
     Dates: start: 20040617
  3. SYNTHROID [Concomitant]
  4. FOSAMAX [Concomitant]
  5. TOPROL-XL [Concomitant]
  6. NORVASC [Concomitant]
  7. LIPITOR [Concomitant]
  8. PREVIDENT (SODIUM FLUORIDE) [Concomitant]
  9. NITROLINGUAL-PUMPSPRAY (GLUCERYL TRINITRATE) [Concomitant]
  10. DALMANE [Concomitant]
  11. LORAZEPAM [Concomitant]
  12. LUTEIN [Concomitant]
  13. FIBERCON (POLYCARBOPHIL CALCIUM) [Concomitant]
  14. CALCIUM GLUCONATE [Concomitant]
  15. VITAMIN D [Concomitant]
  16. MULTI-VITAMIN [Concomitant]

REACTIONS (6)
  - CARDIAC DISORDER [None]
  - CONTUSION [None]
  - DRUG INEFFECTIVE [None]
  - LIMB DISCOMFORT [None]
  - PAIN IN EXTREMITY [None]
  - SURGERY [None]
